FAERS Safety Report 24823401 (Version 1)
Quarter: 2025Q1

REPORT INFORMATION
  Report Type: Report from Study
  Country: US (occurrence: US)
  Receive Date: 20250109
  Receipt Date: 20250109
  Transmission Date: 20250408
  Serious: Yes (Other)
  Sender: TAKEDA
  Company Number: US-TAKEDA-2024TUS122128

PATIENT
  Sex: Female

DRUGS (1)
  1. FRUQUINTINIB [Suspect]
     Active Substance: FRUQUINTINIB
     Indication: Rectal cancer

REACTIONS (4)
  - Neuropathy peripheral [Unknown]
  - Nausea [Recovering/Resolving]
  - Frostbite [Recovering/Resolving]
  - Blood pressure increased [Unknown]
